FAERS Safety Report 11713561 (Version 3)
Quarter: 2016Q4

REPORT INFORMATION
  Report Type: Report from Study
  Country: US (occurrence: US)
  Receive Date: 20151109
  Receipt Date: 20161223
  Transmission Date: 20170206
  Serious: Yes (Other)
  Sender: FDA-Public Use
  Company Number: PHHY2015US146263

PATIENT
  Sex: Male
  Weight: 2.72 kg

DRUGS (13)
  1. NAPROXEN. [Concomitant]
     Active Substance: NAPROXEN
     Indication: FOETAL EXPOSURE DURING PREGNANCY
     Dosage: MATERNAL EXPOSURE
     Route: 064
  2. CARAFATE [Concomitant]
     Active Substance: SUCRALFATE
     Indication: FOETAL EXPOSURE DURING PREGNANCY
     Dosage: MATERNAL EXPOSURE
     Route: 064
  3. ACETAMINOPHEN AND CODEINE [Concomitant]
     Active Substance: ACETAMINOPHEN\CODEINE PHOSPHATE
     Indication: FOETAL EXPOSURE DURING PREGNANCY
     Dosage: MATERNAL EXPOSURE
     Route: 064
  4. ZITHROMAX [Concomitant]
     Active Substance: AZITHROMYCIN DIHYDRATE
     Indication: FOETAL EXPOSURE DURING PREGNANCY
     Dosage: MATERNAL DOSE: 250 MG, QD
     Route: 064
  5. PREDNISONE. [Concomitant]
     Active Substance: PREDNISONE
     Indication: FOETAL EXPOSURE DURING PREGNANCY
     Dosage: MATERNAL EXPOSURE
     Route: 064
  6. GILENYA [Suspect]
     Active Substance: FINGOLIMOD HYDROCHLORIDE
     Indication: FOETAL EXPOSURE DURING PREGNANCY
     Dosage: MATERNAL DOSE: 0.5 MG, QD
     Route: 064
  7. AMANTADINE [Concomitant]
     Active Substance: AMANTADINE
     Indication: FOETAL EXPOSURE DURING PREGNANCY
     Dosage: MATERNAL EXPOSURE
     Route: 064
  8. VITAMIN D [Concomitant]
     Active Substance: CHOLECALCIFEROL
     Indication: FOETAL EXPOSURE DURING PREGNANCY
     Dosage: MATERNAL EXPOSURE
     Route: 064
  9. VENLAFAXINE [Concomitant]
     Active Substance: VENLAFAXINE HYDROCHLORIDE
     Indication: FOETAL EXPOSURE DURING PREGNANCY
     Dosage: MATERNAL EXPOSURE
     Route: 064
  10. BACLOFEN. [Concomitant]
     Active Substance: BACLOFEN
     Indication: FOETAL EXPOSURE DURING PREGNANCY
     Dosage: MATERNAL EXPOSURE
     Route: 064
  11. VITAMIN B12 [Concomitant]
     Active Substance: CYANOCOBALAMIN
     Indication: FOETAL EXPOSURE DURING PREGNANCY
     Dosage: MATERNAL EXPOSURE
     Route: 064
  12. ACTHAR [Concomitant]
     Active Substance: CORTICOTROPIN
     Indication: FOETAL EXPOSURE DURING PREGNANCY
     Dosage: MATERNAL EXPOSURE
     Route: 064
  13. AMBIEN CR [Concomitant]
     Active Substance: ZOLPIDEM TARTRATE
     Indication: FOETAL EXPOSURE DURING PREGNANCY
     Dosage: MATERNAL EXPOSURE
     Route: 064

REACTIONS (2)
  - Dehydration [Recovered/Resolved]
  - Foetal exposure during pregnancy [Unknown]
